FAERS Safety Report 9312513 (Version 1)
Quarter: 2013Q2

REPORT INFORMATION
  Report Type: Spontaneous
  Country: GB (occurrence: None)
  Receive Date: 20130520
  Receipt Date: 20130520
  Transmission Date: 20140414
  Serious: Yes (Hospitalization)
  Sender: FDA-Public Use
  Company Number: 2013AP005181

PATIENT
  Age: 71 Year
  Sex: Female

DRUGS (6)
  1. ALENDRONATE (ALENDRONATE SODIUM) [Suspect]
     Indication: OSTEOPOROSIS PROPHYLAXIS
     Route: 048
     Dates: start: 2005, end: 20130429
  2. FERROUS SULFATE [Concomitant]
  3. NAPROXEN (NAPROXEN) [Concomitant]
  4. OMEPRAZOLE (OMEPRAZOLE) [Concomitant]
  5. PREDNISOLONE (PREDNISOLONE) [Concomitant]
  6. TRAMADOL  (TRAMADOL) [Concomitant]

REACTIONS (2)
  - Arthralgia [None]
  - Atypical fracture [None]
